FAERS Safety Report 6107475-0 (Version None)
Quarter: 2009Q1

REPORT INFORMATION
  Report Type: 
  Country: None (occurrence: None)
  Receive Date: 20090302
  Receipt Date: 20080401
  Transmission Date: 20090719
  Serious: Yes (Other)
  Sender: FDA-Public Use
  Company Number: 2008NI0063

PATIENT
  Age: 65 Year
  Sex: Female
  Weight: 69.4003 kg

DRUGS (15)
  1. NITROLINGUAL PUMPSPRAY [Suspect]
     Indication: OESOPHAGEAL SPASM
     Dosage: 2 DOSES; 2 DOSES; PRN, SUBLINGUAL
     Route: 060
     Dates: start: 20080327, end: 20080329
  2. METFORMIN [Concomitant]
  3. LIPITOR [Concomitant]
  4. PANTOPRAZOLE SODIUM [Concomitant]
  5. FEXOFENADINE [Concomitant]
  6. DIOVAN [Concomitant]
  7. PREMARIN [Concomitant]
  8. CELEBREX [Concomitant]
  9. RESTASIS [Concomitant]
  10. PATHDAY [Concomitant]
  11. XIBROM [Concomitant]
  12. ASTELIN [Concomitant]
  13. RHINOCORT [Concomitant]
  14. ELIDEL [Concomitant]
  15. MULTI-VITAMINS [Concomitant]

REACTIONS (1)
  - DRUG INEFFECTIVE [None]
